FAERS Safety Report 19964484 (Version 1)
Quarter: 2021Q4

REPORT INFORMATION
  Report Type: Spontaneous
  Country: US (occurrence: US)
  Receive Date: 20211018
  Receipt Date: 20211018
  Transmission Date: 20220303
  Serious: Yes (Hospitalization, Other)
  Sender: FDA-Public Use
  Company Number: US-RECORDATI RARE DISEASE INC.-2021004196

PATIENT
  Age: 2 Year
  Sex: Male
  Weight: 9.8 kg

DRUGS (5)
  1. DACTINOMYCIN [Suspect]
     Active Substance: DACTINOMYCIN
     Indication: Embryonal rhabdomyosarcoma
     Dosage: OVER 1-5 MINUTES ON DAY 1 OF CYCLES 1, 3, 5, 8 AND 10
     Route: 042
     Dates: start: 20190923
  2. VINCRISTINE SULFATE [Suspect]
     Active Substance: VINCRISTINE SULFATE
     Indication: Embryonal rhabdomyosarcoma
     Dosage: OVER 1 MINUTE OR INFUSION VIA MINIBAG ON DAYS 1, 8, AND 15 ON CYCLE 1-4
     Route: 042
     Dates: start: 20190923
  3. CAMPTOSAR [Suspect]
     Active Substance: IRINOTECAN HYDROCHLORIDE
     Indication: Embryonal rhabdomyosarcoma
     Dosage: OVER 90 MINUTES ON DAYS 1-5 OF CYCLES 2, 4, 6,7 AND 9
     Route: 042
     Dates: start: 20190923
  4. TEMSIROLIMUS [Suspect]
     Active Substance: TEMSIROLIMUS
     Indication: Embryonal rhabdomyosarcoma
     Dosage: 0.5 MILLIGRAM/KILOGRAM OVER 30-60 MINUTES ON DAYS 1, 8, AND 15 ON CYCLES 1-4 AND CYCLES 8-9
     Route: 042
     Dates: start: 20190923
  5. CYCLOPHOSPHAMIDE [Suspect]
     Active Substance: CYCLOPHOSPHAMIDE
     Indication: Embryonal rhabdomyosarcoma
     Dosage: OVER 60 MINUTES ON DAY 1 OF CYCLES 1, 3, 5,8 AND 10
     Route: 042
     Dates: start: 20190923

REACTIONS (4)
  - Acute kidney injury [Unknown]
  - Weight decreased [Unknown]
  - Bladder spasm [Unknown]
  - Pain [None]

NARRATIVE: CASE EVENT DATE: 20200316
